FAERS Safety Report 4425453-4 (Version None)
Quarter: 2004Q3

REPORT INFORMATION
  Report Type: 
  Country: None (occurrence: None)
  Receive Date: 20040813
  Receipt Date: 20040804
  Transmission Date: 20050211
  Serious: Yes (Hospitalization)
  Sender: FDA-Public Use
  Company Number: FR-ROCHE-376511

PATIENT
  Age: 34 Year
  Sex: Male
  Weight: 61 kg

DRUGS (5)
  1. INVIRASE [Suspect]
     Indication: HIV INFECTION
     Route: 048
  2. ZIAGEN [Suspect]
     Indication: HIV INFECTION
     Route: 048
  3. EPIVIR [Suspect]
     Indication: HIV INFECTION
     Route: 048
  4. NORVIR [Suspect]
     Indication: HIV INFECTION
     Route: 048
  5. NEURONTIN [Concomitant]
     Route: 048

REACTIONS (1)
  - HYPERTHYROIDISM [None]
